FAERS Safety Report 8484409-5 (Version None)
Quarter: 2012Q3

REPORT INFORMATION
  Report Type: 
  Country: None (occurrence: None)
  Receive Date: 20120703
  Receipt Date: 20120628
  Transmission Date: 20120928
  Serious: Yes (Hospitalization)
  Sender: FDA-Public Use
  Company Number: PHHY2012NL023307

PATIENT
  Sex: Female
  Weight: 91 kg

DRUGS (9)
  1. METFORMIN HCL [Concomitant]
     Dosage: 500 MG, TID
     Route: 048
  2. FLUTICASONE PROPIONATE/SALMETEROL [Concomitant]
     Dosage: 1 DF, 50/250 2XDD
  3. PANTOPRAZOLE [Concomitant]
     Dosage: 20 MG, QD
     Route: 048
  4. SPIRIVA [Concomitant]
  5. BERODUAL [Concomitant]
     Dosage: 1 DF, 50/20 2XDD
  6. DICLOFENAC SODIUM [Concomitant]
     Dosage: 50 MG, BID
     Route: 048
  7. LIPITOR [Concomitant]
     Dosage: 10 MG, QD
  8. ATACAND [Concomitant]
     Dosage: 16 MG, QD
  9. TOBI [Suspect]
     Indication: PSEUDOMONAS INFECTION
     Dates: start: 20111222, end: 20120120

REACTIONS (4)
  - INCREASED UPPER AIRWAY SECRETION [None]
  - CHRONIC OBSTRUCTIVE PULMONARY DISEASE [None]
  - COUGH [None]
  - EPISTAXIS [None]
